FAERS Safety Report 17312904 (Version 1)
Quarter: 2020Q1

REPORT INFORMATION
  Report Type: Report from Study
  Country: US (occurrence: US)
  Receive Date: 20200124
  Receipt Date: 20200124
  Transmission Date: 20200409
  Serious: Yes (Other)
  Sender: FDA-Public Use
  Company Number: US-ROCHE-2526323

PATIENT

DRUGS (2)
  1. OSELTAMIVIR [Suspect]
     Active Substance: OSELTAMIVIR
     Indication: ANTIVIRAL PROPHYLAXIS
     Route: 065
  2. WARFARIN [Interacting]
     Active Substance: WARFARIN
     Indication: ANTICOAGULANT THERAPY
     Route: 065

REACTIONS (9)
  - Embolism venous [Unknown]
  - Haematuria [Unknown]
  - Haematoma [Unknown]
  - Drug interaction [Unknown]
  - International normalised ratio increased [Unknown]
  - Haemorrhage intracranial [Unknown]
  - Cerebrovascular accident [Unknown]
  - Epistaxis [Unknown]
  - Gastrointestinal haemorrhage [Unknown]
